FAERS Safety Report 7492621-7 (Version None)
Quarter: 2011Q2

REPORT INFORMATION
  Report Type: 
  Country: None (occurrence: None)
  Receive Date: 20110519
  Receipt Date: 20110516
  Transmission Date: 20111010
  Serious: Yes (Death)
  Sender: FDA-Public Use
  Company Number: US-ELI_LILLY_AND_COMPANY-US201102007607

PATIENT
  Sex: Female

DRUGS (1)
  1. GEMZAR [Suspect]
     Dosage: UNK
     Dates: start: 20100326

REACTIONS (1)
  - PANCREATIC CARCINOMA [None]
